FAERS Safety Report 6233859-6 (Version None)
Quarter: 2009Q2

REPORT INFORMATION
  Report Type: 
  Country: None (occurrence: None)
  Receive Date: 20090616
  Receipt Date: 20090616
  Transmission Date: 20091009
  Serious: Yes (Hospitalization, Other)
  Sender: FDA-Public Use
  Company Number: None

PATIENT
  Age: 59 Year
  Sex: Female
  Weight: 62.1428 kg

DRUGS (1)
  1. FOSAMAX [Suspect]
     Indication: OSTEOPOROSIS
     Dosage: ONE 70MG TABLET ONCE WEEKLY LEAST SIX YEARS SIX MONTH
     Dates: start: 20020609, end: 20081010

REACTIONS (8)
  - BONE DISORDER [None]
  - FALL [None]
  - FEMUR FRACTURE [None]
  - FOOT FRACTURE [None]
  - IMPAIRED WORK ABILITY [None]
  - MYALGIA [None]
  - PAIN IN EXTREMITY [None]
  - STRESS FRACTURE [None]
